FAERS Safety Report 25254423 (Version 2)
Quarter: 2025Q2

REPORT INFORMATION
  Report Type: Spontaneous
  Country: US (occurrence: US)
  Receive Date: 20250430
  Receipt Date: 20250505
  Transmission Date: 20250716
  Serious: No
  Sender: ELI LILLY AND COMPANY
  Company Number: US-ELI_LILLY_AND_COMPANY-US202504023969

PATIENT
  Age: 58 Year
  Sex: Female

DRUGS (8)
  1. ZEPBOUND [Suspect]
     Active Substance: TIRZEPATIDE
     Indication: Weight control
     Route: 065
     Dates: start: 202501, end: 202503
  2. ZEPBOUND [Suspect]
     Active Substance: TIRZEPATIDE
     Indication: Weight control
     Route: 065
     Dates: start: 202501, end: 202503
  3. ZEPBOUND [Suspect]
     Active Substance: TIRZEPATIDE
     Indication: Weight control
     Route: 065
     Dates: start: 202501, end: 202503
  4. ZEPBOUND [Suspect]
     Active Substance: TIRZEPATIDE
     Indication: Weight control
     Route: 065
     Dates: start: 202501, end: 202503
  5. ROSUVASTATIN [Suspect]
     Active Substance: ROSUVASTATIN
     Indication: Blood cholesterol abnormal
     Route: 065
  6. ROSUVASTATIN [Suspect]
     Active Substance: ROSUVASTATIN
     Indication: Blood calcium abnormal
  7. LOSARTAN [Suspect]
     Active Substance: LOSARTAN
     Indication: Blood pressure abnormal
  8. LOSARTAN [Suspect]
     Active Substance: LOSARTAN
     Indication: Blood potassium abnormal

REACTIONS (2)
  - Palpitations [Recovered/Resolved]
  - Muscle disorder [Unknown]

NARRATIVE: CASE EVENT DATE: 20250101
